FAERS Safety Report 4289434-6 (Version None)
Quarter: 2004Q1

REPORT INFORMATION
  Report Type: 
  Country: None (occurrence: None)
  Receive Date: 20040206
  Receipt Date: 20040122
  Transmission Date: 20041129
  Serious: Yes (Other)
  Sender: FDA-Public Use
  Company Number: 10047267-PS142844-1

PATIENT
  Age: 36 Year
  Sex: Female
  Weight: 66.6788 kg

DRUGS (1)
  1. CLINIMIX 2.75/10 SULFITE FREE IN DEXTROSE 10% [Suspect]

REACTIONS (5)
  - ACCIDENTAL EXPOSURE [None]
  - DYSPNOEA [None]
  - ERYTHEMA [None]
  - PHARMACEUTICAL PRODUCT COMPLAINT [None]
  - SWELLING FACE [None]
